FAERS Safety Report 5138604-3 (Version None)
Quarter: 2006Q4

REPORT INFORMATION
  Report Type: 
  Country: None (occurrence: None)
  Receive Date: 20061030
  Receipt Date: 20061026
  Transmission Date: 20070319
  Serious: Yes (Hospitalization, Congenital Anomaly)
  Sender: FDA-Public Use
  Company Number: US-GLAXOSMITHKLINE-A0625119A

PATIENT
  Sex: Male
  Weight: 3 kg

DRUGS (3)
  1. COMBIVIR [Suspect]
     Dosage: 2TAB PER DAY
  2. VIRACEPT [Concomitant]
     Dosage: 2500MG PER DAY
  3. TRIMETHOPRIM + SULFAMETHOXAZOLE [Concomitant]

REACTIONS (4)
  - ADRENOGENITAL SYNDROME [None]
  - DRUG EXPOSURE DURING PREGNANCY [None]
  - HYPERKALAEMIA [None]
  - HYPONATRAEMIA [None]
